FAERS Safety Report 25828478 (Version 1)
Quarter: 2025Q3

REPORT INFORMATION
  Report Type: Spontaneous
  Country: US (occurrence: US)
  Receive Date: 20250922
  Receipt Date: 20250922
  Transmission Date: 20251021
  Serious: Yes (Hospitalization, Other)
  Sender: BAXTER
  Company Number: US-MLMSERVICE-20241009-PI221689-00145-1

PATIENT
  Age: 60 Year
  Sex: Male

DRUGS (20)
  1. FLUCONAZOLE [Interacting]
     Active Substance: FLUCONAZOLE
     Indication: Fungal skin infection
     Route: 065
  2. FENTANYL [Interacting]
     Active Substance: FENTANYL
     Indication: Sedative therapy
     Route: 065
  3. FENTANYL [Interacting]
     Active Substance: FENTANYL
     Indication: Endotracheal intubation
  4. OXYCODONE [Interacting]
     Active Substance: OXYCODONE
     Indication: Analgesic therapy
     Route: 065
  5. MEPERIDINE [Interacting]
     Active Substance: MEPERIDINE
     Indication: Chills
     Route: 065
  6. VENLAFAXINE [Interacting]
     Active Substance: VENLAFAXINE HYDROCHLORIDE
     Indication: Depression
     Route: 065
  7. COBICISTAT [Interacting]
     Active Substance: COBICISTAT
     Indication: HIV infection
     Route: 065
  8. DARUNAVIR [Interacting]
     Active Substance: DARUNAVIR
     Indication: HIV infection
     Route: 065
  9. EMTRICITABINE [Interacting]
     Active Substance: EMTRICITABINE
     Indication: HIV infection
     Route: 065
  10. TENOFOVIR ALAFENAMIDE [Interacting]
     Active Substance: TENOFOVIR ALAFENAMIDE
     Indication: HIV infection
     Route: 065
  11. ETOMIDATE [Concomitant]
     Active Substance: ETOMIDATE
     Indication: Endotracheal intubation
     Route: 065
  12. ROCURONIUM [Concomitant]
     Active Substance: ROCURONIUM BROMIDE
     Indication: Endotracheal intubation
     Route: 065
  13. VERSED [Concomitant]
     Active Substance: MIDAZOLAM HYDROCHLORIDE
     Indication: Endotracheal intubation
     Route: 065
  14. PROPOFOL [Concomitant]
     Active Substance: PROPOFOL
     Indication: Sedative therapy
     Route: 065
  15. MEROPENEM [Concomitant]
     Active Substance: MEROPENEM
     Indication: Pneumonia aspiration
     Route: 065
  16. CEFEPIME [Concomitant]
     Active Substance: CEFEPIME HYDROCHLORIDE
     Indication: Pneumonia aspiration
     Route: 065
  17. METRONIDAZOLE [Concomitant]
     Active Substance: METRONIDAZOLE
     Indication: Pneumonia aspiration
     Route: 065
  18. VANCOMYCIN [Concomitant]
     Active Substance: VANCOMYCIN
     Indication: Pneumonia aspiration
     Route: 065
  19. DANTROLENE [Concomitant]
     Active Substance: DANTROLENE
     Indication: Hyperthermia
     Route: 065
  20. BROMOCRIPTINE [Concomitant]
     Active Substance: BROMOCRIPTINE
     Indication: Hyperthermia
     Route: 065

REACTIONS (8)
  - Serotonin syndrome [Recovering/Resolving]
  - Hyperreflexia [Recovering/Resolving]
  - Tremor [Recovering/Resolving]
  - Hyperthermia [Recovering/Resolving]
  - Hoffmann^s sign [Recovering/Resolving]
  - Chills [Recovering/Resolving]
  - Clonus [Recovering/Resolving]
  - Drug interaction [Unknown]
